FAERS Safety Report 7957958-3 (Version None)
Quarter: 2011Q4

REPORT INFORMATION
  Report Type: 
  Country: None (occurrence: None)
  Receive Date: 20111205
  Receipt Date: 20111125
  Transmission Date: 20120403
  Serious: Yes (Other)
  Sender: FDA-Public Use
  Company Number: BR-ASTRAZENECA-2011SE46322

PATIENT
  Age: 69 Year
  Sex: Male
  Weight: 59 kg

DRUGS (8)
  1. TECNOMET [Concomitant]
     Route: 048
     Dates: start: 20090101
  2. DIOVAN [Concomitant]
     Route: 048
     Dates: start: 20090101
  3. PREDNISOLONE [Concomitant]
     Route: 048
     Dates: start: 20090101
  4. ROSUVASTATIN CALCIUM [Suspect]
     Indication: HYPERCHOLESTEROLAEMIA
     Route: 048
     Dates: start: 20090101
  5. AMLODIPINE [Concomitant]
     Route: 048
     Dates: start: 20090101
  6. JANUVIA [Concomitant]
     Route: 048
     Dates: start: 20090101
  7. CLOPIDOGREL [Concomitant]
     Route: 048
     Dates: start: 20090101
  8. CILOSTAZOL [Concomitant]
     Route: 048
     Dates: start: 20090101

REACTIONS (1)
  - RENAL ARTERY OCCLUSION [None]
